FAERS Safety Report 9140214 (Version 6)
Quarter: 2014Q1

REPORT INFORMATION
  Report Type: Spontaneous
  Country: US (occurrence: US)
  Receive Date: 20130305
  Receipt Date: 20140212
  Transmission Date: 20141002
  Serious: No
  Sender: FDA-Public Use
  Company Number: US-009507513-1303USA001473

PATIENT
  Age: 49 Year
  Sex: Female
  Weight: 51.7 kg

DRUGS (8)
  1. PEG-INTRON [Suspect]
     Indication: HEPATITIS C
     Dosage: 0.5 UNK, QW, REDIPEN
     Route: 058
     Dates: start: 20130226, end: 20130813
  2. PEG-INTRON [Suspect]
     Dosage: VIAL
     Dates: start: 20061110, end: 20070202
  3. REBETOL [Suspect]
     Indication: HEPATITIS C
     Dosage: UNK
     Route: 048
     Dates: start: 20061110, end: 20070202
  4. REBETOL [Suspect]
     Dosage: 4 PILLS IN AM AND 3 PILLS IN PM
     Route: 048
     Dates: start: 20130226, end: 20130813
  5. VICTRELIS [Suspect]
     Indication: HEPATITIS C
     Dosage: UNK
     Route: 048
     Dates: start: 20130311
  6. VICTRELIS [Suspect]
     Dosage: 4 PILLS; EVERY 7 TO 9HRS
     Route: 048
     Dates: start: 20130327, end: 20130813
  7. METOPROLOL [Concomitant]
     Dosage: 25 MG, BID
  8. HYDROCHLOROTHIAZIDE (+) LOSARTAN POTASSIUM [Concomitant]
     Dosage: UNK, STRENGTH 100-25 MG, 1 DAILY

REACTIONS (15)
  - Pharyngitis streptococcal [Recovering/Resolving]
  - Cardiac failure congestive [Recovering/Resolving]
  - Abdominal pain upper [Unknown]
  - Drug ineffective [Unknown]
  - Memory impairment [Unknown]
  - Asthenia [Unknown]
  - Muscle spasms [Recovered/Resolved]
  - Back pain [Recovered/Resolved]
  - Drug dose omission [Unknown]
  - Asthenia [Unknown]
  - Drug dose omission [Unknown]
  - Sinusitis [Recovering/Resolving]
  - Chest pain [Unknown]
  - Oedema peripheral [Unknown]
  - Hypertension [Not Recovered/Not Resolved]
